FAERS Safety Report 10911302 (Version 4)
Quarter: 2015Q2

REPORT INFORMATION
  Report Type: Spontaneous
  Country: AR (occurrence: AR)
  Receive Date: 20150313
  Receipt Date: 20150526
  Transmission Date: 20150821
  Serious: Yes (Other)
  Sender: FDA-Public Use
  Company Number: PHHY2015AR030019

PATIENT
  Age: 52 Year
  Sex: Female

DRUGS (3)
  1. TRILEPTAL [Suspect]
     Active Substance: OXCARBAZEPINE
     Indication: TRIGEMINAL NEURALGIA
     Dosage: 300 OT, UNK
     Route: 065
  2. TRILEPTAL [Suspect]
     Active Substance: OXCARBAZEPINE
     Dosage: 0.25 DF (0.25 TABLET OF 600MG), UNK
     Route: 065
  3. TRILEPTAL [Suspect]
     Active Substance: OXCARBAZEPINE
     Dosage: 600 OT, UNK
     Route: 065

REACTIONS (11)
  - Pharyngeal inflammation [Unknown]
  - Nervousness [Unknown]
  - Trigeminal neuralgia [Unknown]
  - Malaise [Unknown]
  - Seizure [Unknown]
  - Product use issue [Unknown]
  - Wrong technique in drug usage process [Unknown]
  - Mood altered [Unknown]
  - Allergy to chemicals [Unknown]
  - Pain [Unknown]
  - Slow speech [Unknown]
